FAERS Safety Report 20654040 (Version 1)
Quarter: 2022Q1

REPORT INFORMATION
  Report Type: Spontaneous
  Country: RU (occurrence: RU)
  Receive Date: 20220330
  Receipt Date: 20220330
  Transmission Date: 20220423
  Serious: Yes (Other)
  Sender: FDA-Public Use
  Company Number: RU-SERVIER-S21012046

PATIENT

DRUGS (17)
  1. ONCASPAR [Suspect]
     Active Substance: PEGASPARGASE
     Indication: Acute lymphocytic leukaemia
     Dosage: 740 IU (1000 IU/M2)
     Route: 042
     Dates: start: 20211011, end: 20211011
  2. TN UNSPECIFIED [Concomitant]
     Indication: Acute lymphocytic leukaemia
     Dosage: 2 MG, QD
     Route: 037
     Dates: start: 20211008, end: 20211008
  3. TN UNSPECIFIED [Concomitant]
     Indication: Acute lymphocytic leukaemia
     Dosage: 12 MG
     Route: 037
     Dates: start: 20211008, end: 20211008
  4. TN UNSPECIFIED [Concomitant]
     Indication: Acute lymphocytic leukaemia
     Dosage: 50 MG
     Route: 037
     Dates: start: 20211008, end: 20211008
  5. TN UNSPECIFIED [Concomitant]
     Indication: Pneumocystis jirovecii pneumonia
     Dosage: 240 MG, BID, 3 TIMES A WEEK
     Route: 065
     Dates: start: 20210928
  6. TN UNSPECIFIED [Concomitant]
     Indication: Prophylaxis
  7. TN UNSPECIFIED [Concomitant]
     Indication: Tumour lysis syndrome
     Dosage: 100 MG, BID
     Route: 048
     Dates: start: 20210928
  8. TN UNSPECIFIED [Concomitant]
     Indication: Prophylaxis
  9. TN UNSPECIFIED [Concomitant]
     Indication: Bacterial infection
     Dosage: 900 MG, BID
     Route: 042
     Dates: start: 20210930
  10. TN UNSPECIFIED [Concomitant]
     Indication: Bacterial infection
     Dosage: 270 MG, QD
     Route: 042
     Dates: start: 20211007
  11. TN UNSPECIFIED [Concomitant]
     Indication: Antifungal prophylaxis
     Dosage: 100 MG, QD
     Route: 048
     Dates: start: 20210930
  12. TN UNSPECIFIED [Concomitant]
     Indication: Tumour lysis syndrome
     Dosage: 500 ML, QD
     Route: 042
     Dates: start: 20210928
  13. TN UNSPECIFIED [Concomitant]
     Indication: Prophylaxis
  14. TN UNSPECIFIED [Concomitant]
     Indication: Tumour lysis syndrome
     Dosage: 30 ML, BID
     Route: 042
     Dates: start: 20210928
  15. TN UNSPECIFIED [Concomitant]
     Indication: Prophylaxis
  16. TN UNSPECIFIED [Concomitant]
     Indication: Tumour lysis syndrome
     Dosage: 500 ML, QD
     Route: 042
     Dates: start: 20210928
  17. TN UNSPECIFIED [Concomitant]
     Indication: Prophylaxis

REACTIONS (3)
  - Bronchospasm [Recovered/Resolved]
  - Cough [Recovered/Resolved]
  - Incorrect drug administration rate [Recovered/Resolved]

NARRATIVE: CASE EVENT DATE: 20211011
